FAERS Safety Report 8711476 (Version 3)
Quarter: 2015Q1

REPORT INFORMATION
  Report Type: Report from Study
  Country: US (occurrence: US)
  Receive Date: 20120807
  Receipt Date: 20150204
  Transmission Date: 20150721
  Serious: Yes (Other)
  Sender: FDA-Public Use
  Company Number: US-ROCHE-1094938

PATIENT
  Sex: Female

DRUGS (21)
  1. DARVOCET [Concomitant]
     Active Substance: ACETAMINOPHEN\PROPOXYPHENE HYDROCHLORIDE
  2. XOPENEX [Concomitant]
     Active Substance: LEVALBUTEROL HYDROCHLORIDE
  3. SINGULAIR [Concomitant]
     Active Substance: MONTELUKAST SODIUM
  4. LORAZEPAM. [Concomitant]
     Active Substance: LORAZEPAM
  5. PREDNISONE. [Concomitant]
     Active Substance: PREDNISONE
  6. XOLAIR [Suspect]
     Active Substance: OMALIZUMAB
     Route: 058
     Dates: start: 20100803, end: 201101
  7. LIPITOR [Concomitant]
     Active Substance: ATORVASTATIN CALCIUM
  8. SPIRIVA [Concomitant]
     Active Substance: TIOTROPIUM BROMIDE MONOHYDRATE
  9. ZITHROMAX [Concomitant]
     Active Substance: AZITHROMYCIN DIHYDRATE
  10. XOLAIR [Suspect]
     Active Substance: OMALIZUMAB
     Indication: ASTHMA
     Route: 058
     Dates: start: 2006, end: 2007
  11. EFFEXOR [Concomitant]
     Active Substance: VENLAFAXINE HYDROCHLORIDE
  12. MECLIZINE [Concomitant]
     Active Substance: MECLIZINE\MECLIZINE HYDROCHLORIDE
  13. TRAMADOL [Concomitant]
     Active Substance: TRAMADOL
  14. BENADRYL [Concomitant]
     Active Substance: DIPHENHYDRAMINE HYDROCHLORIDE
  15. PREVACID [Concomitant]
     Active Substance: LANSOPRAZOLE
  16. ALLEGRA [Concomitant]
     Active Substance: FEXOFENADINE HYDROCHLORIDE
  17. FLONASE [Concomitant]
     Active Substance: FLUTICASONE PROPIONATE
     Route: 065
  18. ALBUTEROL. [Concomitant]
     Active Substance: ALBUTEROL
  19. AMBIEN [Concomitant]
     Active Substance: ZOLPIDEM TARTRATE
  20. DIOVAN [Concomitant]
     Active Substance: VALSARTAN
  21. LORAZEPAM. [Concomitant]
     Active Substance: LORAZEPAM

REACTIONS (18)
  - Nausea [Unknown]
  - Otitis media [Unknown]
  - Abdominal pain upper [Unknown]
  - Cough [Unknown]
  - Diarrhoea [Unknown]
  - Asthma [Unknown]
  - Dyspnoea exertional [Unknown]
  - Body temperature increased [Unknown]
  - Ear pain [Unknown]
  - Wheezing [Unknown]
  - Headache [Unknown]
  - Crying [Unknown]
  - Dyspnoea [Unknown]
  - Chills [Unknown]
  - Oedema [Unknown]
  - Pyrexia [Unknown]
  - Dysuria [Unknown]
  - Abdominal pain [Unknown]
